FAERS Safety Report 7720222-1 (Version None)
Quarter: 2011Q3

REPORT INFORMATION
  Report Type: 
  Country: None (occurrence: None)
  Receive Date: 20110831
  Receipt Date: 20110823
  Transmission Date: 20111222
  Serious: Yes (Hospitalization, Other)
  Sender: FDA-Public Use
  Company Number: JP-PFIZER INC-2011194548

PATIENT
  Age: 42 Year
  Sex: Female

DRUGS (1)
  1. AZULFIDINE [Suspect]
     Dosage: 500 MG DAILY
     Dates: start: 20110714

REACTIONS (3)
  - LISTLESS [None]
  - PYREXIA [None]
  - LIVER DISORDER [None]
